FAERS Safety Report 15618769 (Version 2)
Quarter: 2018Q4

REPORT INFORMATION
  Report Type: Spontaneous
  Country: GB (occurrence: GB)
  Receive Date: 20181114
  Receipt Date: 20181115
  Transmission Date: 20190205
  Serious: Yes (Hospitalization, Other)
  Sender: FDA-Public Use
  Company Number: GB-009507513-1811GBR004488

PATIENT
  Age: 23 Year
  Sex: Female
  Weight: 66 kg

DRUGS (1)
  1. MERCILON [Suspect]
     Active Substance: DESOGESTREL\ETHINYL ESTRADIOL
     Indication: CONTRACEPTION
     Dosage: STRENGTH: 150MCG/20MG
     Route: 048
     Dates: start: 20171212, end: 20181009

REACTIONS (3)
  - Chest pain [Unknown]
  - Pulmonary embolism [Not Recovered/Not Resolved]
  - Dyspnoea [Unknown]

NARRATIVE: CASE EVENT DATE: 20181009
